FAERS Safety Report 8531146-4 (Version None)
Quarter: 2012Q3

REPORT INFORMATION
  Report Type: 
  Country: None (occurrence: None)
  Receive Date: 20120723
  Receipt Date: 20120712
  Transmission Date: 20120928
  Serious: Yes (Hospitalization)
  Sender: FDA-Public Use
  Company Number: US-BAYER-2012-072419

PATIENT
  Age: 32 Year
  Sex: Female
  Weight: 88 kg

DRUGS (8)
  1. ARIXTRA [Concomitant]
  2. PULMICORT [Concomitant]
     Route: 045
  3. ADVAIR DISKUS 100/50 [Concomitant]
     Dosage: UNK
     Dates: start: 20100707
  4. DROSPIRENONE AND ETHINYL ESTRADIOL [Suspect]
  5. ALBUTEROL INHALANT [Concomitant]
     Indication: DYSPNOEA
     Dosage: 2 PUFFS [EVERY] 4 HOURS P.R.N. (INTERPRETED AS -AS NEEDED)
  6. MIRALAX [Concomitant]
  7. TYLENOL [Concomitant]
  8. YAZ [Suspect]
     Dosage: UNK
     Dates: start: 20070411

REACTIONS (1)
  - PULMONARY EMBOLISM [None]
